FAERS Safety Report 7051793-9 (Version None)
Quarter: 2010Q4

REPORT INFORMATION
  Report Type: 
  Country: None (occurrence: None)
  Receive Date: 20101012
  Receipt Date: 20100925
  Transmission Date: 20110411
  Serious: Yes (Hospitalization, Other)
  Sender: FDA-Public Use
  Company Number: 2010AP002080

PATIENT
  Age: 39 Year
  Sex: Female

DRUGS (7)
  1. HALOPERIDOL DECANOATE [Suspect]
     Indication: BIPOLAR I DISORDER
     Dosage: 7 MG;QD;IM
     Route: 030
  2. HALOPERIDOL DECANOATE [Suspect]
     Dosage: PO
     Route: 048
  3. LITHIUM CARBONATE CAP [Suspect]
     Indication: BIPOLAR I DISORDER
     Dosage: 600 MG;QD
  4. CLOZAPINE [Suspect]
  5. VALPROIC ACID SYRUP [Suspect]
  6. PIPAMPERONE [Suspect]
  7. DIAZEPAM [Suspect]
     Indication: AGITATION

REACTIONS (7)
  - ABDOMINAL DISTENSION [None]
  - BLOOD POTASSIUM DECREASED [None]
  - CATATONIA [None]
  - GASTROINTESTINAL HYPOMOTILITY [None]
  - MIDDLE INSOMNIA [None]
  - NEUROLEPTIC MALIGNANT SYNDROME [None]
  - PSYCHOTIC DISORDER [None]
